FAERS Safety Report 6510790-X (Version None)
Quarter: 2009Q4

REPORT INFORMATION
  Report Type: 
  Country: None (occurrence: None)
  Receive Date: 20091222
  Receipt Date: 20091215
  Transmission Date: 20100525
  Serious: Yes (Other)
  Sender: FDA-Public Use
  Company Number: GB-JNJFOC-20091204512

PATIENT
  Age: 53 Year
  Sex: Male
  Weight: 76 kg

DRUGS (4)
  1. INFLIXIMAB [Suspect]
     Indication: PSORIATIC ARTHROPATHY
     Route: 042
  2. AMITRIPTYLINE [Concomitant]
  3. ACETAMINOPHEN WITH PROPOXYPHENE HCL TAB [Concomitant]
  4. STEROIDS NOS [Concomitant]
     Route: 061

REACTIONS (1)
  - ADVERSE DRUG REACTION [None]
